FAERS Safety Report 6903053-1 (Version None)
Quarter: 2010Q3

REPORT INFORMATION
  Report Type: 
  Country: None (occurrence: None)
  Receive Date: 20100803
  Receipt Date: 20080613
  Transmission Date: 20110219
  Serious: Yes (Other)
  Sender: FDA-Public Use
  Company Number: US-PFIZER INC-2008050301

PATIENT
  Sex: Female
  Weight: 96.3 kg

DRUGS (3)
  1. LYRICA [Suspect]
     Indication: FIBROMYALGIA
     Dates: start: 20080602, end: 20080612
  2. AMBIEN [Concomitant]
     Indication: SLEEP DISORDER
  3. VITAMIN TAB [Concomitant]

REACTIONS (4)
  - DIZZINESS [None]
  - DYSPHAGIA [None]
  - STOMATITIS [None]
  - TONGUE OEDEMA [None]
